FAERS Safety Report 24848369 (Version 1)
Quarter: 2025Q1

REPORT INFORMATION
  Report Type: Report from Study
  Country: US (occurrence: US)
  Receive Date: 20250116
  Receipt Date: 20250116
  Transmission Date: 20250409
  Serious: Yes (Other)
  Sender: ABBVIE
  Company Number: US-ABBVIE-6082100

PATIENT
  Age: 27 Year
  Sex: Female

DRUGS (1)
  1. SKYRIZI [Suspect]
     Active Substance: RISANKIZUMAB-RZAA
     Indication: Crohn^s disease
     Route: 058
     Dates: start: 20240830

REACTIONS (6)
  - Intestinal stenosis [Recovering/Resolving]
  - Pain [Recovering/Resolving]
  - Gastrointestinal disorder [Recovering/Resolving]
  - Therapeutic product effect incomplete [Unknown]
  - Capsule endoscopy [Recovering/Resolving]
  - Functional gastrointestinal disorder [Recovering/Resolving]

NARRATIVE: CASE EVENT DATE: 20240101
